FAERS Safety Report 18455296 (Version 2)
Quarter: 2020Q4

REPORT INFORMATION
  Report Type: Report from Study
  Country: US (occurrence: US)
  Receive Date: 20201102
  Receipt Date: 20201119
  Transmission Date: 20210114
  Serious: Yes (Other)
  Sender: FDA-Public Use
  Company Number: US-INTERCEPT-CT2020002197

PATIENT
  Age: 70 Year
  Sex: Female
  Weight: 82 kg

DRUGS (8)
  1. SCHIFF MOVE FREE [Concomitant]
     Active Substance: DIETARY SUPPLEMENT
     Indication: ROUTINE HEALTH MAINTENANCE
     Dosage: 1 CAPSULE, QD
     Route: 048
     Dates: start: 20160805
  2. IBUPROFEN. [Concomitant]
     Active Substance: IBUPROFEN
     Indication: HUMERUS FRACTURE
     Dosage: 800 MG, QID
     Route: 048
     Dates: start: 20171011
  3. ASPIRIN. [Concomitant]
     Active Substance: ASPIRIN
     Indication: ROUTINE HEALTH MAINTENANCE
     Dosage: 81 MG, QD
     Route: 048
     Dates: start: 19910520
  4. LISINOPRIL. [Concomitant]
     Active Substance: LISINOPRIL
     Indication: HYPERTENSION
     Dosage: 40 MG, QD
     Route: 048
     Dates: start: 201806
  5. CANDESARTAN. [Concomitant]
     Active Substance: CANDESARTAN
     Indication: HYPERTENSION
     Dosage: 16 MG, QD
     Route: 048
     Dates: start: 20200101
  6. LOPRESSOR [Concomitant]
     Active Substance: METOPROLOL TARTRATE
     Indication: HYPERTENSION
     Dosage: 40 MG, QD
     Route: 048
     Dates: start: 201806
  7. OBETICHOLIC ACID [Suspect]
     Active Substance: OBETICHOLIC ACID
     Indication: NON-ALCOHOLIC STEATOHEPATITIS
     Dosage: 25 MG, QD
     Route: 048
     Dates: start: 20170316
  8. OXYCODONE [Concomitant]
     Active Substance: OXYCODONE
     Indication: HUMERUS FRACTURE
     Dosage: 5 MG, PRN
     Route: 048
     Dates: start: 20171011

REACTIONS (1)
  - Coronary artery stenosis [Not Recovered/Not Resolved]

NARRATIVE: CASE EVENT DATE: 202004
